FAERS Safety Report 15659618 (Version 1)
Quarter: 2018Q4

REPORT INFORMATION
  Report Type: Report from Study
  Country: CA (occurrence: CA)
  Receive Date: 20181127
  Receipt Date: 20181127
  Transmission Date: 20190205
  Serious: Yes (Other)
  Sender: FDA-Public Use
  Company Number: CA-AMGEN-CANSL2018167998

PATIENT

DRUGS (1)
  1. ENBREL [Suspect]
     Active Substance: ETANERCEPT
     Indication: RHEUMATOID ARTHRITIS
     Dosage: 50 MG, QWK
     Route: 065

REACTIONS (8)
  - Meningioma [Unknown]
  - Tendon rupture [Unknown]
  - Gait disturbance [Unknown]
  - Infection [Unknown]
  - Meniscus injury [Unknown]
  - Muscular weakness [Unknown]
  - Fall [Unknown]
  - Hernia [Unknown]
